FAERS Safety Report 13589480 (Version 4)
Quarter: 2018Q2

REPORT INFORMATION
  Report Type: Other
  Country: DE (occurrence: DE)
  Receive Date: 20170529
  Receipt Date: 20180404
  Transmission Date: 20180711
  Serious: Yes (Other)
  Sender: FDA-Public Use
  Company Number: DE-VELOXIS PHARMACEUTICALS-2021312

PATIENT
  Age: 17 Year
  Sex: Male

DRUGS (4)
  1. MYCOPHENOLATE MOFETIL. [Suspect]
     Active Substance: MYCOPHENOLATE MOFETIL
  2. VALGANCICLOVIR. [Suspect]
     Active Substance: VALGANCICLOVIR
  3. ENVARSUS XR [Suspect]
     Active Substance: TACROLIMUS
     Indication: LUNG TRANSPLANT
  4. PREDNISONE. [Suspect]
     Active Substance: PREDNISONE

REACTIONS (5)
  - Graft versus host disease [Recovered/Resolved]
  - Transplant rejection [Recovered/Resolved]
  - Intentional product use issue [Unknown]
  - Cytomegalovirus infection [Recovered/Resolved]
  - Drug administered to patient of inappropriate age [Unknown]
